FAERS Safety Report 11410899 (Version 1)
Quarter: 2015Q3

REPORT INFORMATION
  Report Type: Spontaneous
  Country: IN (occurrence: IN)
  Receive Date: 20150824
  Receipt Date: 20150824
  Transmission Date: 20151125
  Serious: Yes (Other)
  Sender: FDA-Public Use
  Company Number: IN-MYLANLABS-2015M1028098

PATIENT

DRUGS (1)
  1. ISOTRETINOIN [Suspect]
     Active Substance: ISOTRETINOIN
     Indication: ICHTHYOSIS
     Dosage: 10MG
     Route: 048

REACTIONS (2)
  - Rickets [Unknown]
  - Vitamin D deficiency [Recovered/Resolved]
